FAERS Safety Report 7656552-1 (Version None)
Quarter: 2011Q3

REPORT INFORMATION
  Report Type: 
  Country: None (occurrence: None)
  Receive Date: 20110804
  Receipt Date: 20110121
  Transmission Date: 20111222
  Serious: No
  Sender: FDA-Public Use
  Company Number: US-BAUSCH-2011BL000507

PATIENT
  Age: 48 Year
  Sex: Female

DRUGS (4)
  1. SIMVASTATIN [Concomitant]
     Indication: BLOOD CHOLESTEROL INCREASED
  2. OPCON-A [Suspect]
     Indication: EYE ALLERGY
     Route: 047
     Dates: start: 20110107, end: 20110121
  3. OPCON-A [Suspect]
     Indication: LACRIMATION INCREASED
     Route: 047
     Dates: start: 20110107, end: 20110121
  4. DIOVAN [Concomitant]
     Indication: HYPERTENSION

REACTIONS (6)
  - OCULAR HYPERAEMIA [None]
  - MYDRIASIS [None]
  - EXOPHTHALMOS [None]
  - EYES SUNKEN [None]
  - HYPERSENSITIVITY [None]
  - ABNORMAL SENSATION IN EYE [None]
